FAERS Safety Report 24721481 (Version 1)
Quarter: 2024Q4

REPORT INFORMATION
  Report Type: Spontaneous
  Country: CA (occurrence: CA)
  Receive Date: 20241211
  Receipt Date: 20241211
  Transmission Date: 20250115
  Serious: Yes (Death)
  Sender: B BRAUN
  Company Number: CA-B.Braun Medical Inc.-2166863

PATIENT

DRUGS (2)
  1. METRONIDAZOLE [Suspect]
     Active Substance: METRONIDAZOLE
  2. POTASSIUM CHLORIDE [Suspect]
     Active Substance: POTASSIUM CHLORIDE

REACTIONS (2)
  - Death [Fatal]
  - Medication error [Fatal]
